FAERS Safety Report 4386356-7 (Version None)
Quarter: 2004Q2

REPORT INFORMATION
  Report Type: 
  Country: None (occurrence: None)
  Receive Date: 20040623
  Receipt Date: 20040615
  Transmission Date: 20050107
  Serious: Yes (Hospitalization)
  Sender: FDA-Public Use
  Company Number: US-JNJFOC-20040603740

PATIENT
  Age: 13 Year
  Sex: Male
  Weight: 40.8237 kg

DRUGS (9)
  1. EXTRA STRENGTH TYLENOL [Suspect]
     Indication: HEADACHE
     Dosage: 1000 MG, 2 IN 1 DAY, ORAL
     Route: 048
     Dates: start: 20040609, end: 20040609
  2. CYCLOSPORINE [Concomitant]
  3. PREDNISONE TAB [Concomitant]
  4. NORVASC [Concomitant]
  5. LABETOLOL (LABETALOL) [Concomitant]
  6. ENALAPRIL MALEATE [Concomitant]
  7. SODIUM BICARBONATE IN PLASTIC CONTAINER [Concomitant]
  8. EPOGEN [Concomitant]
  9. LIPITOR [Concomitant]

REACTIONS (2)
  - CONVULSION [None]
  - LOSS OF CONSCIOUSNESS [None]
